FAERS Safety Report 7785006-7 (Version None)
Quarter: 2011Q3

REPORT INFORMATION
  Report Type: 
  Country: None (occurrence: None)
  Receive Date: 20110928
  Receipt Date: 20110921
  Transmission Date: 20111222
  Serious: Yes (Hospitalization, Other)
  Sender: FDA-Public Use
  Company Number: PHEH2011US04944

PATIENT
  Sex: Female
  Weight: 60 kg

DRUGS (3)
  1. MS CONTIN [Concomitant]
     Indication: CHEST PAIN
     Dosage: 30 MG, UNK
     Route: 048
  2. ADVAIR DISKUS 100/50 [Concomitant]
     Indication: CHRONIC OBSTRUCTIVE PULMONARY DISEASE
     Dosage: 1 PUFF,  BID
  3. EXJADE [Suspect]
     Dosage: 500 MG, BID
     Route: 048

REACTIONS (1)
  - PULMONARY EMBOLISM [None]
